FAERS Safety Report 12481858 (Version 15)
Quarter: 2019Q2

REPORT INFORMATION
  Report Type: Report from Study
  Country: None (occurrence: US)
  Receive Date: 20160620
  Receipt Date: 20190416
  Transmission Date: 20190711
  Serious: Yes (Hospitalization, Other)
  Sender: FDA-Public Use
  Company Number: US-ABBVIE-16K-163-1651736-00

PATIENT
  Age: 69 Year
  Sex: Male
  Weight: 79 kg

DRUGS (24)
  1. HUMIRA [Suspect]
     Active Substance: ADALIMUMAB
     Route: 058
     Dates: start: 2018
  2. FENTANYL. [Suspect]
     Active Substance: FENTANYL
     Indication: INTESTINAL RESECTION
     Route: 065
  3. PROBIOTIC [Concomitant]
     Active Substance: PROBIOTICS NOS
     Indication: PRODUCT USED FOR UNKNOWN INDICATION
  4. VITAMIN D NOS [Concomitant]
     Active Substance: VITAMIN D NOS
     Indication: VITAMIN SUPPLEMENTATION
  5. HUMIRA [Suspect]
     Active Substance: ADALIMUMAB
     Indication: COLITIS ULCERATIVE
  6. OMEPRAZOLE. [Concomitant]
     Active Substance: OMEPRAZOLE
     Indication: PRODUCT USED FOR UNKNOWN INDICATION
  7. METOPROLOL. [Concomitant]
     Active Substance: METOPROLOL
     Indication: PRODUCT USED FOR UNKNOWN INDICATION
  8. LOPERAMIDE [Concomitant]
     Active Substance: LOPERAMIDE
     Indication: PRODUCT USED FOR UNKNOWN INDICATION
  9. HUMIRA [Suspect]
     Active Substance: ADALIMUMAB
     Indication: COLITIS ULCERATIVE
     Route: 058
     Dates: start: 2010, end: 2010
  10. HUMIRA [Suspect]
     Active Substance: ADALIMUMAB
     Route: 058
  11. HUMIRA [Suspect]
     Active Substance: ADALIMUMAB
     Indication: CROHN^S DISEASE
     Route: 058
  12. CANASA [Concomitant]
     Active Substance: MESALAMINE
     Indication: PRODUCT USED FOR UNKNOWN INDICATION
  13. VITAMIN B12 [Concomitant]
     Active Substance: CYANOCOBALAMIN
     Indication: PRODUCT USED FOR UNKNOWN INDICATION
  14. HUMIRA [Suspect]
     Active Substance: ADALIMUMAB
     Indication: CROHN^S DISEASE
     Route: 058
     Dates: start: 2009, end: 2010
  15. HUMIRA [Suspect]
     Active Substance: ADALIMUMAB
     Route: 058
     Dates: start: 2010, end: 201512
  16. VITAMIN E [Concomitant]
     Active Substance: .ALPHA.-TOCOPHEROL
     Indication: VITAMIN SUPPLEMENTATION
  17. VITAMIN D NOS [Concomitant]
     Active Substance: VITAMIN D NOS
     Indication: VITAMIN SUPPLEMENTATION
  18. HUMIRA [Suspect]
     Active Substance: ADALIMUMAB
     Route: 058
     Dates: start: 2016, end: 201801
  19. PREDNISONE. [Concomitant]
     Active Substance: PREDNISONE
     Indication: PRODUCT USED FOR UNKNOWN INDICATION
  20. OXYCODONE [Concomitant]
     Active Substance: OXYCODONE
     Indication: PRODUCT USED FOR UNKNOWN INDICATION
  21. ASACOL [Concomitant]
     Active Substance: MESALAMINE
     Indication: PRODUCT USED FOR UNKNOWN INDICATION
  22. VITAMIN C [Concomitant]
     Active Substance: ASCORBIC ACID
     Indication: PRODUCT USED FOR UNKNOWN INDICATION
  23. LISINOPRIL. [Concomitant]
     Active Substance: LISINOPRIL
     Indication: PRODUCT USED FOR UNKNOWN INDICATION
  24. FOLIC ACID. [Concomitant]
     Active Substance: FOLIC ACID
     Indication: VITAMIN SUPPLEMENTATION

REACTIONS (42)
  - Fatigue [Not Recovered/Not Resolved]
  - Intestinal fistula [Recovering/Resolving]
  - Periprocedural myocardial infarction [Recovering/Resolving]
  - Pneumonia staphylococcal [Recovered/Resolved]
  - Frequent bowel movements [Not Recovered/Not Resolved]
  - Skin disorder [Unknown]
  - Stress [Unknown]
  - Crohn^s disease [Recovering/Resolving]
  - Large intestinal obstruction [Recovered/Resolved]
  - Dry skin [Not Recovered/Not Resolved]
  - Abscess intestinal [Recovered/Resolved]
  - Abscess intestinal [Recovering/Resolving]
  - Post procedural infection [Not Recovered/Not Resolved]
  - Tooth infection [Recovered/Resolved]
  - Intestinal anastomosis complication [Not Recovered/Not Resolved]
  - Gastrointestinal haemorrhage [Recovered/Resolved]
  - Cardiac arrest [Recovered/Resolved]
  - Pneumonia [Recovered/Resolved]
  - Fistula of small intestine [Recovered/Resolved]
  - Procedural intestinal perforation [Recovering/Resolving]
  - Procedural complication [Recovered/Resolved]
  - Tooth fracture [Recovered/Resolved]
  - Tremor [Recovered/Resolved with Sequelae]
  - Squamous cell carcinoma [Not Recovered/Not Resolved]
  - Hallucination [Recovered/Resolved]
  - Therapeutic product effect incomplete [Not Recovered/Not Resolved]
  - Crohn^s disease [Recovered/Resolved]
  - Large intestinal obstruction [Unknown]
  - Crohn^s disease [Recovered/Resolved]
  - Pneumonia staphylococcal [Recovered/Resolved]
  - Weight decreased [Not Recovered/Not Resolved]
  - Intestinal anastomosis [Recovering/Resolving]
  - Drug level decreased [Unknown]
  - Vitamin D decreased [Unknown]
  - Post procedural fistula [Recovered/Resolved]
  - Skin discolouration [Not Recovered/Not Resolved]
  - Proctitis [Not Recovered/Not Resolved]
  - Osteopenia [Unknown]
  - Large intestine infection [Unknown]
  - Diarrhoea [Not Recovered/Not Resolved]
  - Impaired healing [Not Recovered/Not Resolved]
  - Drug ineffective [Recovered/Resolved]

NARRATIVE: CASE EVENT DATE: 2010
